FAERS Safety Report 5251770-4 (Version None)
Quarter: 2007Q1

REPORT INFORMATION
  Report Type: 
  Country: None (occurrence: None)
  Receive Date: 20070228
  Receipt Date: 20070221
  Transmission Date: 20070707
  Serious: Yes (Other)
  Sender: FDA-Public Use
  Company Number: US-SHR-US-2007-006261

PATIENT
  Sex: Female

DRUGS (1)
  1. CLIMARA [Suspect]
     Dosage: .037 MG/D, 1X/WEEK
     Route: 062

REACTIONS (3)
  - BENIGN BREAST NEOPLASM [None]
  - LYMPHADENECTOMY [None]
  - PHARMACEUTICAL PRODUCT COMPLAINT [None]
